FAERS Safety Report 9204145 (Version 1)
Quarter: 2013Q2

REPORT INFORMATION
  Report Type: Spontaneous
  Country: US (occurrence: US)
  Receive Date: 20130402
  Receipt Date: 20130402
  Transmission Date: 20140414
  Serious: Yes (Other)
  Sender: FDA-Public Use
  Company Number: US-PFIZER INC-2013101759

PATIENT
  Sex: Female

DRUGS (2)
  1. LYRICA [Suspect]
     Indication: PAIN IN EXTREMITY
     Dosage: UNK
  2. LYRICA [Suspect]
     Indication: TOOTHACHE

REACTIONS (3)
  - Infection [Unknown]
  - Off label use [Unknown]
  - Drug ineffective for unapproved indication [Unknown]
